FAERS Safety Report 4943965-1 (Version None)
Quarter: 2006Q1

REPORT INFORMATION
  Report Type: 
  Country: None (occurrence: None)
  Receive Date: 20060313
  Receipt Date: 20060313
  Transmission Date: 20060701
  Serious: Yes (Hospitalization)
  Sender: FDA-Public Use
  Company Number: None

PATIENT
  Sex: Female

DRUGS (2)
  1. PHENAZOPYRIDINE HCL TAB [Suspect]
     Indication: URINARY TRACT INFECTION
     Dosage: 95 MG , 2 TIMES ORALLY
     Route: 048
     Dates: start: 20050504
  2. PHENAZOPYRIDINE HCL TAB [Suspect]
     Indication: URINARY TRACT INFECTION
     Dosage: 95 MG , 2 TIMES ORALLY
     Route: 048
     Dates: start: 20051202

REACTIONS (1)
  - PANCREATITIS ACUTE [None]
